FAERS Safety Report 21598080 (Version 1)
Quarter: 2022Q4

REPORT INFORMATION
  Report Type: Report from Study
  Country: CA (occurrence: CA)
  Receive Date: 20221115
  Receipt Date: 20221115
  Transmission Date: 20230113
  Serious: Yes (Hospitalization, Other)
  Sender: FDA-Public Use
  Company Number: CA-002147023-NVSC2022CA251461

PATIENT
  Age: 56 Year
  Sex: Female

DRUGS (18)
  1. ZOMETA [Suspect]
     Active Substance: ZOLEDRONIC ACID
     Indication: Plasma cell myeloma
     Dosage: UNK
     Route: 065
     Dates: start: 201612
  2. LENALIDOMIDE [Suspect]
     Active Substance: LENALIDOMIDE
     Indication: Plasma cell myeloma
     Dosage: UNK
     Route: 048
  3. CYCLOPHOSPHAMIDE\BORTEZOMIB\DEXAMETHASONE [Suspect]
     Active Substance: CYCLOPHOSPHAMIDE\BORTEZOMIB\DEXAMETHASONE
     Indication: Plasma cell myeloma
     Dosage: UNK
     Route: 065
  4. CYCLOPHOSPHAMIDE\BORTEZOMIB\DEXAMETHASONE [Suspect]
     Active Substance: CYCLOPHOSPHAMIDE\BORTEZOMIB\DEXAMETHASONE
     Dosage: UNK
     Route: 065
     Dates: start: 20160510
  5. CYCLOPHOSPHAMIDE\BORTEZOMIB\DEXAMETHASONE [Suspect]
     Active Substance: CYCLOPHOSPHAMIDE\BORTEZOMIB\DEXAMETHASONE
     Dosage: UNK (CYCLE 1 D8 GIVEN)
     Route: 065
     Dates: start: 20160620
  6. CYCLOPHOSPHAMIDE\BORTEZOMIB\DEXAMETHASONE [Suspect]
     Active Substance: CYCLOPHOSPHAMIDE\BORTEZOMIB\DEXAMETHASONE
     Dosage: UNK (CYCLE 2)
     Route: 065
     Dates: start: 20160711
  7. CYCLOPHOSPHAMIDE\BORTEZOMIB\DEXAMETHASONE [Suspect]
     Active Substance: CYCLOPHOSPHAMIDE\BORTEZOMIB\DEXAMETHASONE
     Dosage: UNK (CYCLE 3)
     Route: 065
     Dates: start: 20160808
  8. CYCLOPHOSPHAMIDE\BORTEZOMIB\DEXAMETHASONE [Suspect]
     Active Substance: CYCLOPHOSPHAMIDE\BORTEZOMIB\DEXAMETHASONE
     Dosage: UNK (CYCLE 4)
     Route: 065
     Dates: start: 20160906
  9. CYCLOPHOSPHAMIDE\BORTEZOMIB\DEXAMETHASONE [Suspect]
     Active Substance: CYCLOPHOSPHAMIDE\BORTEZOMIB\DEXAMETHASONE
     Dosage: UNK (REINDUCTION)
     Route: 065
     Dates: start: 20220310
  10. CYCLOPHOSPHAMIDE\BORTEZOMIB\DEXAMETHASONE [Suspect]
     Active Substance: CYCLOPHOSPHAMIDE\BORTEZOMIB\DEXAMETHASONE
     Dosage: UNK
     Route: 065
     Dates: start: 20220407
  11. MELPHALAN [Concomitant]
     Active Substance: MELPHALAN
     Indication: Plasma cell myeloma
     Dosage: UNK (HIGH DOSE)
     Route: 065
     Dates: start: 201701
  12. REVLIMID [Concomitant]
     Active Substance: LENALIDOMIDE
     Indication: Plasma cell myeloma
     Dosage: UNK
     Route: 065
     Dates: end: 201907
  13. REVLIMID [Concomitant]
     Active Substance: LENALIDOMIDE
     Dosage: UNK
     Route: 065
  14. REVLIMID [Concomitant]
     Active Substance: LENALIDOMIDE
     Dosage: UNK
     Route: 065
     Dates: start: 20170705
  15. ACYCLOVIR [Concomitant]
     Active Substance: ACYCLOVIR
     Indication: Product used for unknown indication
     Dosage: 400 MG, BID
     Route: 065
  16. ONDANSETRON [Concomitant]
     Active Substance: ONDANSETRON
     Indication: Product used for unknown indication
     Dosage: 16 MG, PRN
     Route: 065
  17. VELCADE [Concomitant]
     Active Substance: BORTEZOMIB
     Indication: Plasma cell myeloma
     Dosage: UNK
     Route: 065
  18. PROCHLORPERAZINE [Concomitant]
     Active Substance: PROCHLORPERAZINE
     Indication: Product used for unknown indication
     Dosage: UNK
     Route: 065

REACTIONS (9)
  - Intestinal perforation [Unknown]
  - Febrile neutropenia [Unknown]
  - Pelvic abscess [Unknown]
  - Small intestinal obstruction [Unknown]
  - Plasma cell myeloma refractory [Unknown]
  - Monoclonal immunoglobulin increased [Not Recovered/Not Resolved]
  - Dyspepsia [Unknown]
  - Anxiety [Unknown]
  - Anaemia [Unknown]

NARRATIVE: CASE EVENT DATE: 20160401
